FAERS Safety Report 6396744-5 (Version None)
Quarter: 2009Q4

REPORT INFORMATION
  Report Type: 
  Country: None (occurrence: None)
  Receive Date: 20091012
  Receipt Date: 20090601
  Transmission Date: 20100525
  Serious: No
  Sender: FDA-Public Use
  Company Number: US-ASTRAZENECA-2008UW17171

PATIENT
  Age: 53 Year
  Sex: Female
  Weight: 61.7 kg

DRUGS (13)
  1. SYMBICORT [Suspect]
     Indication: RESPIRATORY DISORDER
     Dosage: 160/4.5 UG
     Route: 055
  2. LEVAQUIN [Concomitant]
  3. PREDNISONE [Concomitant]
  4. LANOXIN [Concomitant]
  5. POTASSIUM CHLORIDE [Concomitant]
  6. NORCO [Concomitant]
  7. XANAX [Concomitant]
  8. LASIX [Concomitant]
  9. MAGNESIUM [Concomitant]
  10. THEOPHYLLINE [Concomitant]
  11. METFORMIN HYDROCHLORIDE [Concomitant]
  12. PLAVIX [Concomitant]
  13. VITAMIN D [Concomitant]

REACTIONS (8)
  - BLINDNESS [None]
  - BLOOD PRESSURE INCREASED [None]
  - DYSPNOEA [None]
  - EYE IRRITATION [None]
  - LACRIMATION INCREASED [None]
  - ODYNOPHAGIA [None]
  - OROPHARYNGEAL PAIN [None]
  - TREMOR [None]
